FAERS Safety Report 16056941 (Version 1)
Quarter: 2019Q2

REPORT INFORMATION
  Report Type: Spontaneous
  Country: US (occurrence: US)
  Receive Date: 20190311
  Receipt Date: 20190311
  Transmission Date: 20190711
  Serious: No
  Sender: FDA-Public Use
  Company Number: None

PATIENT
  Age: 68 Year
  Sex: Male
  Weight: 81 kg

DRUGS (8)
  1. CIMNAMON [Concomitant]
  2. TURMERIC [Concomitant]
     Active Substance: HERBALS\TURMERIC
  3. COQ10 [Concomitant]
     Active Substance: UBIDECARENONE
  4. FLOVATRIPTAN [Concomitant]
  5. RESVERATROL [Concomitant]
     Active Substance: DIETARY SUPPLEMENT\RESVERATROL
  6. PROBIOTIC [Concomitant]
     Active Substance: PROBIOTICS NOS
  7. SILODOSIN. [Suspect]
     Active Substance: SILODOSIN
     Indication: BENIGN PROSTATIC HYPERPLASIA
     Dosage: ?          QUANTITY:1 CAPSULE(S);?
     Route: 048
     Dates: start: 20190206, end: 20190302
  8. DAILY MULTIPLE VITAMIN [Concomitant]

REACTIONS (5)
  - Benign prostatic hyperplasia [None]
  - Product use complaint [None]
  - Symptom recurrence [None]
  - Product complaint [None]
  - Product substitution issue [None]

NARRATIVE: CASE EVENT DATE: 20190206
